FAERS Safety Report 7741294-4 (Version None)
Quarter: 2011Q3

REPORT INFORMATION
  Report Type: 
  Country: None (occurrence: None)
  Receive Date: 20110909
  Receipt Date: 20110830
  Transmission Date: 20111222
  Serious: Yes (Disabling, Other)
  Sender: FDA-Public Use
  Company Number: US-ELI_LILLY_AND_COMPANY-US201109000248

PATIENT
  Age: 67 Year
  Sex: Female

DRUGS (4)
  1. HUMULIN N [Suspect]
     Indication: DIABETES MELLITUS
     Dosage: 60 U, EACH MORNING
  2. HUMULIN R [Suspect]
     Dosage: 15 U, EACH EVENING
  3. HUMULIN R [Suspect]
     Indication: DIABETES MELLITUS
     Dosage: 15 U, EACH MORNING
  4. HUMULIN N [Suspect]
     Dosage: 20 U, EACH EVENING

REACTIONS (1)
  - DIABETES MELLITUS [None]
